FAERS Safety Report 17063592 (Version 1)
Quarter: 2019Q4

REPORT INFORMATION
  Report Type: Spontaneous
  Country: GB (occurrence: GB)
  Receive Date: 20191122
  Receipt Date: 20191122
  Transmission Date: 20200122
  Serious: Yes (Disabling, Other)
  Sender: FDA-Public Use
  Company Number: GB-TEVA-2019-GB-1138730

PATIENT
  Age: 81 Year
  Sex: Female
  Weight: 69.6 kg

DRUGS (28)
  1. GABAPENTIN. [Concomitant]
     Active Substance: GABAPENTIN
     Indication: PREOPERATIVE CARE
     Dosage: 300 MG
     Route: 048
     Dates: start: 20160518, end: 20160518
  2. DICLOFENAC [Concomitant]
     Active Substance: DICLOFENAC
     Dosage: 75MG/100ML BUFFERED
     Dates: start: 20160518, end: 20160518
  3. PARACETAMOL [Concomitant]
     Active Substance: ACETAMINOPHEN
     Indication: PREOPERATIVE CARE
     Dosage: 1 GRAM
     Route: 048
     Dates: start: 20160518
  4. OXYCODONE HYDROCHLORIDE. [Concomitant]
     Active Substance: OXYCODONE HYDROCHLORIDE
     Indication: ANALGESIC THERAPY
     Dosage: 5MG/5ML
     Route: 048
     Dates: start: 20160518
  5. CASSIA [Concomitant]
     Indication: CONSTIPATION
     Route: 048
     Dates: start: 20160518
  6. BUPIVACAINE. [Suspect]
     Active Substance: BUPIVACAINE
     Indication: HIP ARTHROPLASTY
     Dosage: 3 ML
     Route: 065
     Dates: start: 20160518
  7. PROPOFOL. [Concomitant]
     Active Substance: PROPOFOL
     Indication: HIP ARTHROPLASTY
     Dosage: 243 MG
     Dates: start: 20160518
  8. DALTEPARIN SODIUM [Concomitant]
     Active Substance: DALTEPARIN SODIUM
     Dosage: 5000 UNITS IN 0.2ML
     Route: 058
     Dates: start: 20160518
  9. LIDOCAINE. [Suspect]
     Active Substance: LIDOCAINE
     Route: 065
  10. NITRAZEPAM [Concomitant]
     Active Substance: NITRAZEPAM
     Dosage: AT NIGHT , 5 MG
  11. COLECALCIFEROL [Concomitant]
     Active Substance: CHOLECALCIFEROL
  12. IBUPROFEN. [Concomitant]
     Active Substance: IBUPROFEN
     Dosage: 400 MG
     Route: 048
     Dates: start: 20160518, end: 20160523
  13. FLUCLOXACILLIN [Concomitant]
     Active Substance: FLUCLOXACILLIN
     Indication: ANTIBIOTIC PROPHYLAXIS
     Route: 042
     Dates: start: 20160518, end: 20160519
  14. CYCLIZINE LACTATE [Concomitant]
     Active Substance: CYCLIZINE LACTATE
     Dosage: 50ML/1ML
     Dates: start: 20160518
  15. MAGNESIUM [Concomitant]
     Active Substance: MAGNESIUM
  16. ONDANSETRON [Concomitant]
     Active Substance: ONDANSETRON
     Indication: NAUSEA
     Dosage: 4MG/2ML , 4 MG
     Dates: start: 20160518
  17. CYCLIZINE HYDROCHLORIDE [Concomitant]
     Active Substance: CYCLIZINE HYDROCHLORIDE
     Dosage: 50 MG
     Route: 048
     Dates: start: 20160518
  18. OMEPRAZOLE. [Concomitant]
     Active Substance: OMEPRAZOLE
     Indication: PREOPERATIVE CARE
     Dosage: 20 MG
     Route: 048
     Dates: start: 20160518, end: 20160523
  19. GENTAMICIN. [Concomitant]
     Active Substance: GENTAMICIN
     Indication: ANTIBIOTIC PROPHYLAXIS
     Dates: start: 20160518, end: 20160518
  20. AMLODIPINE [Concomitant]
     Active Substance: AMLODIPINE BESYLATE
     Dosage: IN MORNING , 5 MG 1 DAYS
  21. SELENIUM [Concomitant]
     Active Substance: SELENIUM
  22. CHLORHEXIDINE [Concomitant]
     Active Substance: CHLORHEXIDINE
     Indication: HIP ARTHROPLASTY
     Dates: start: 20160518
  23. ALLIUM SATIVUM [Concomitant]
  24. LACTULOSE. [Concomitant]
     Active Substance: LACTULOSE
     Dosage: 3.35G/5ML , 15 ML
     Route: 048
     Dates: start: 20160518
  25. ONDANSETRON [Concomitant]
     Active Substance: ONDANSETRON
     Indication: NAUSEA
     Dosage: 4 MG
     Route: 048
     Dates: start: 20160518
  26. DEXAMETHASONE. [Concomitant]
     Active Substance: DEXAMETHASONE
     Indication: PREOPERATIVE CARE
     Route: 048
     Dates: start: 20160518
  27. OXYCODONE HYDROCHLORIDE. [Concomitant]
     Active Substance: OXYCODONE HYDROCHLORIDE
     Route: 048
     Dates: start: 20160518, end: 20160519
  28. TRANEXAMIC ACID. [Concomitant]
     Active Substance: TRANEXAMIC ACID
     Indication: HIP ARTHROPLASTY
     Dates: start: 20160518

REACTIONS (7)
  - Joint swelling [Unknown]
  - Joint noise [Not Recovered/Not Resolved]
  - Pain in extremity [Not Recovered/Not Resolved]
  - Pleuritic pain [Unknown]
  - Back pain [Recovered/Resolved]
  - Limb discomfort [Not Recovered/Not Resolved]
  - Weight bearing difficulty [Not Recovered/Not Resolved]

NARRATIVE: CASE EVENT DATE: 201605
